FAERS Safety Report 16962501 (Version 1)
Quarter: 2019Q4

REPORT INFORMATION
  Report Type: Spontaneous
  Country: US (occurrence: US)
  Receive Date: 20191025
  Receipt Date: 20191025
  Transmission Date: 20200122
  Serious: No
  Sender: FDA-Public Use
  Company Number: None

PATIENT

DRUGS (1)
  1. TYMLOS [Suspect]
     Active Substance: ABALOPARATIDE

REACTIONS (3)
  - Foot fracture [None]
  - Compression fracture [None]
  - Pain [None]

NARRATIVE: CASE EVENT DATE: 20191025
